FAERS Safety Report 24765921 (Version 2)
Quarter: 2025Q1

REPORT INFORMATION
  Report Type: Report from Study
  Country: US (occurrence: US)
  Receive Date: 20241223
  Receipt Date: 20250107
  Transmission Date: 20250409
  Serious: Yes (Other)
  Sender: ABBVIE
  Company Number: US-ABBVIE-6054282

PATIENT
  Age: 73 Year
  Sex: Female
  Weight: 66 kg

DRUGS (3)
  1. SKYRIZI [Suspect]
     Active Substance: RISANKIZUMAB-RZAA
     Indication: Psoriasis
     Dosage: FORM STRENGTH-150 MG
     Route: 058
     Dates: start: 202405, end: 202405
  2. ROSUVASTATIN [Concomitant]
     Active Substance: ROSUVASTATIN
     Indication: Cerebrovascular accident
  3. VABYSMO [Suspect]
     Active Substance: FARICIMAB-SVOA
     Indication: Macular degeneration
     Route: 065

REACTIONS (7)
  - Macular degeneration [Recovered/Resolved]
  - Pain [Recovered/Resolved]
  - Eye infection [Recovered/Resolved]
  - Product storage error [Unknown]
  - Retinal detachment [Unknown]
  - COVID-19 [Recovered/Resolved]
  - Myopia [Unknown]

NARRATIVE: CASE EVENT DATE: 20240101
